FAERS Safety Report 22737575 (Version 2)
Quarter: 2024Q1

REPORT INFORMATION
  Report Type: Spontaneous
  Country: US (occurrence: US)
  Receive Date: 20230721
  Receipt Date: 20240124
  Transmission Date: 20240410
  Serious: Yes (Hospitalization, Other)
  Sender: FDA-Public Use
  Company Number: US-AMGEN-USASP2023124910

PATIENT
  Age: 52 Year
  Sex: Male

DRUGS (4)
  1. TAVNEOS [Suspect]
     Active Substance: AVACOPAN
     Indication: Granulomatosis with polyangiitis
     Dosage: 30 MILLIGRAM, BID, WITH FOOD
     Route: 048
     Dates: start: 20220630, end: 202307
  2. TAVNEOS [Suspect]
     Active Substance: AVACOPAN
     Indication: Vasculitis
     Dosage: 30 MILLIGRAM, BID, WITH FOOD
     Route: 048
     Dates: start: 202307
  3. TAVNEOS [Suspect]
     Active Substance: AVACOPAN
     Dosage: 30 MILLIGRAM, BID (TAKE 3 CAPSULES (30 MG) BY MOUTH TWICE DAILY WITH FOOD FOR VASCULITIS)
     Route: 048
  4. TAVNEOS [Suspect]
     Active Substance: AVACOPAN
     Dosage: UNK UNK, QD (HIS DOCTOR CHANGED HIS DOSE TO 2 A DAY)
     Route: 048

REACTIONS (5)
  - Cardiac operation [Recovering/Resolving]
  - Cardiac ablation [Recovering/Resolving]
  - Cardiac pacemaker insertion [Recovering/Resolving]
  - Presyncope [Recovering/Resolving]
  - Off label use [Unknown]

NARRATIVE: CASE EVENT DATE: 20230601
